FAERS Safety Report 25416773 (Version 1)
Quarter: 2025Q2

REPORT INFORMATION
  Report Type: Spontaneous
  Country: ES (occurrence: ES)
  Receive Date: 20250610
  Receipt Date: 20250610
  Transmission Date: 20250716
  Serious: Yes (Hospitalization)
  Sender: TEVA
  Company Number: None

PATIENT
  Age: 81 Year
  Sex: Male

DRUGS (2)
  1. CLOPIDOGREL [Interacting]
     Active Substance: CLOPIDOGREL BISULFATE
     Indication: Myocardial ischaemia
     Dosage: 1-0-0, 50 TABLETS
     Route: 048
     Dates: start: 20250207, end: 20250512
  2. ASPIRIN [Interacting]
     Active Substance: ASPIRIN
     Indication: Myocardial ischaemia
     Dosage: 0-1-0, EFG GASTRO-RESISTANT TABLETS, 60 TABLETS
     Route: 048
     Dates: start: 20121106, end: 20250512

REACTIONS (1)
  - Lower gastrointestinal haemorrhage [Recovered/Resolved]

NARRATIVE: CASE EVENT DATE: 20250512
